FAERS Safety Report 10434379 (Version 1)
Quarter: 2014Q3

REPORT INFORMATION
  Report Type: Spontaneous
  Country: DE (occurrence: DE)
  Receive Date: 20140905
  Receipt Date: 20140905
  Transmission Date: 20150326
  Serious: Yes (Congenital Anomaly, Other)
  Sender: FDA-Public Use
  Company Number: DE-TEVA-505301GER

PATIENT
  Age: 1 Day
  Sex: Male

DRUGS (7)
  1. VITAVERLAN [Concomitant]
     Route: 064
  2. CLEXANE [Concomitant]
     Active Substance: ENOXAPARIN SODIUM
     Route: 064
  3. FAMPYRA RETARD [Suspect]
     Active Substance: DALFAMPRIDINE
     Route: 064
  4. ASS 100 [Concomitant]
     Active Substance: ASPIRIN
     Route: 064
  5. REMERGIL [Suspect]
     Active Substance: MIRTAZAPINE
     Route: 064
  6. GABAPENTIN. [Suspect]
     Active Substance: GABAPENTIN
     Route: 064
  7. TYSABRI [Suspect]
     Active Substance: NATALIZUMAB
     Route: 064

REACTIONS (7)
  - Neonatal respiratory distress syndrome [Recovered/Resolved]
  - Hypospadias [Not Recovered/Not Resolved]
  - Feeding disorder neonatal [Recovered/Resolved]
  - Osteopenia [Unknown]
  - Atrial septal defect [Unknown]
  - Retinopathy of prematurity [Unknown]
  - Small for dates baby [Recovering/Resolving]

NARRATIVE: CASE EVENT DATE: 20130628
